FAERS Safety Report 24464256 (Version 1)
Quarter: 2024Q4

REPORT INFORMATION
  Report Type: Report from Study
  Country: US (occurrence: US)
  Receive Date: 20241018
  Receipt Date: 20241018
  Transmission Date: 20250115
  Serious: No
  Sender: ROCHE
  Company Number: US-ROCHE-3496180

PATIENT
  Age: 82 Year
  Sex: Female

DRUGS (16)
  1. XOLAIR [Suspect]
     Active Substance: OMALIZUMAB
     Indication: Asthma
     Route: 058
  2. XOLAIR [Suspect]
     Active Substance: OMALIZUMAB
  3. ALBUTEROL [Concomitant]
     Active Substance: ALBUTEROL
  4. ASPIRIN [Concomitant]
     Active Substance: ASPIRIN
  5. BUDESONIDE [Concomitant]
     Active Substance: BUDESONIDE
  6. CETIRIZINE [Concomitant]
     Active Substance: CETIRIZINE HYDROCHLORIDE
  7. CYCLOBENZAPRINE HYDROCHLORIDE [Concomitant]
     Active Substance: CYCLOBENZAPRINE HYDROCHLORIDE
  8. ERYTHROMYCIN [Concomitant]
     Active Substance: ERYTHROMYCIN
  9. VITAMIN C [Concomitant]
     Active Substance: ASCORBIC ACID
  10. ERGOCALCIFEROL [Concomitant]
     Active Substance: ERGOCALCIFEROL
  11. TRAMADOL [Concomitant]
     Active Substance: TRAMADOL
  12. MONTELUKAST [Concomitant]
     Active Substance: MONTELUKAST
  13. MIRTAZAPINE [Concomitant]
     Active Substance: MIRTAZAPINE
  14. GABAPENTIN [Concomitant]
     Active Substance: GABAPENTIN
  15. FUROSEMIDE [Concomitant]
     Active Substance: FUROSEMIDE
  16. FAMOTIDINE [Concomitant]
     Active Substance: FAMOTIDINE

REACTIONS (4)
  - Joint swelling [Unknown]
  - Muscle spasms [Unknown]
  - Pain [Unknown]
  - Peripheral swelling [Unknown]
